FAERS Safety Report 4667689-3 (Version None)
Quarter: 2005Q2

REPORT INFORMATION
  Report Type: 
  Country: None (occurrence: None)
  Receive Date: 20050520
  Receipt Date: 20050512
  Transmission Date: 20051028
  Serious: Yes (Other)
  Sender: FDA-Public Use
  Company Number: US-JNJFOC-20050503551

PATIENT
  Sex: Female
  Weight: 75.75 kg

DRUGS (17)
  1. INFLIXIMAB [Suspect]
     Indication: RHEUMATOID ARTHRITIS
     Route: 042
  2. METHOTREXATE [Concomitant]
  3. FLEXERIL [Concomitant]
  4. PROVACID [Concomitant]
  5. HYDROCODONE BITARTRATE [Concomitant]
     Dosage: 10/325MG
  6. LIBRAX [Concomitant]
  7. LIBRAX [Concomitant]
  8. PREDNISON [Concomitant]
  9. HUMABID [Concomitant]
  10. TRIAMTERENE AND HYDROCHLOROTHIAZIDE [Concomitant]
  11. TRIAMTERENE AND HYDROCHLOROTHIAZIDE [Concomitant]
     Dosage: 75/50MG
  12. FOLIC ACID [Concomitant]
  13. SYNTHROID [Concomitant]
  14. URECHOLINE [Concomitant]
  15. BETHANECHOL [Concomitant]
  16. LASIX [Concomitant]
  17. ZYPREXA [Concomitant]

REACTIONS (1)
  - SKIN CANCER [None]
